FAERS Safety Report 5815302-1 (Version None)
Quarter: 2008Q3

REPORT INFORMATION
  Report Type: 
  Country: None (occurrence: None)
  Receive Date: 20080718
  Receipt Date: 20080715
  Transmission Date: 20090109
  Serious: Yes (Hospitalization)
  Sender: FDA-Public Use
  Company Number: CN-ABBOTT-08P-035-0462619-00

PATIENT
  Sex: Female

DRUGS (2)
  1. HYTRIN [Suspect]
     Indication: DYSURIA
     Route: 048
     Dates: start: 20080628, end: 20080629
  2. SPARFLOXACIN [Suspect]
     Indication: INFECTION PROPHYLAXIS
     Route: 048
     Dates: start: 20080628

REACTIONS (5)
  - ATRIOVENTRICULAR BLOCK FIRST DEGREE [None]
  - HYPOKALAEMIA [None]
  - IMMUNE SYSTEM DISORDER [None]
  - NAUSEA [None]
  - VERTEBROBASILAR INSUFFICIENCY [None]
